FAERS Safety Report 6355700-3 (Version None)
Quarter: 2009Q3

REPORT INFORMATION
  Report Type: 
  Country: None (occurrence: None)
  Receive Date: 20090910
  Receipt Date: 20090903
  Transmission Date: 20100115
  Serious: Yes (Hospitalization)
  Sender: FDA-Public Use
  Company Number: 2008SP025831

PATIENT
  Age: 61 Year
  Sex: Female
  Weight: 47 kg

DRUGS (5)
  1. PEG-INTRON [Suspect]
     Indication: HEPATITIS C
     Dosage: 80 MCG;QW;SC
     Route: 058
     Dates: start: 20081010, end: 20081204
  2. REBETOL [Suspect]
     Indication: HEPATITIS C
     Dosage: 600 MG;QD;PO
     Route: 048
     Dates: start: 20081010, end: 20081211
  3. CALONAL [Concomitant]
  4. MUCODYNE [Concomitant]
  5. ISODINE GARGLE [Concomitant]

REACTIONS (7)
  - DEPRESSION [None]
  - DYSKINESIA [None]
  - INCOHERENT [None]
  - LOGORRHOEA [None]
  - PSYCHOTIC DISORDER [None]
  - RESTLESSNESS [None]
  - SCHIZOPHRENIA [None]
